FAERS Safety Report 15291536 (Version 3)
Quarter: 2018Q3

REPORT INFORMATION
  Report Type: Spontaneous
  Country: DE (occurrence: DE)
  Receive Date: 20180817
  Receipt Date: 20180919
  Transmission Date: 20181010
  Serious: Yes (Other)
  Sender: FDA-Public Use
  Company Number: DE-CELLTRION INC.-2018DE021923

PATIENT

DRUGS (5)
  1. REMSIMA [Suspect]
     Active Substance: INFLIXIMAB
     Dosage: 300 MG, EVERY 8 WEEKS
     Route: 065
     Dates: start: 20170124, end: 20170124
  2. REMSIMA [Suspect]
     Active Substance: INFLIXIMAB
     Indication: CROHN^S DISEASE
     Dosage: UNK
     Route: 065
     Dates: start: 20160707, end: 20160707
  3. REMSIMA [Suspect]
     Active Substance: INFLIXIMAB
     Dosage: 400 MG, EVERY 8 WEEKS
  4. AZATHIOPRINE. [Concomitant]
     Active Substance: AZATHIOPRINE
     Dosage: UNK
     Dates: end: 2016
  5. BUDESONIDE. [Concomitant]
     Active Substance: BUDESONIDE
     Dosage: INFREQUENTLY

REACTIONS (1)
  - Squamous cell carcinoma [Recovered/Resolved]

NARRATIVE: CASE EVENT DATE: 201807
